FAERS Safety Report 15125597 (Version 1)
Quarter: 2018Q3

REPORT INFORMATION
  Report Type: Spontaneous
  Country: ZA (occurrence: ZA)
  Receive Date: 20180710
  Receipt Date: 20180710
  Transmission Date: 20181010
  Serious: Yes (Hospitalization)
  Sender: FDA-Public Use
  Company Number: ZA-PFIZER INC-2018273870

PATIENT
  Age: 68 Year
  Sex: Female

DRUGS (4)
  1. ALDACTONE [Suspect]
     Active Substance: SPIRONOLACTONE
     Dosage: 25 MG, UNK
  2. ASPEN TRAZODONE [Suspect]
     Active Substance: TRAZODONE HYDROCHLORIDE
     Dosage: 100 MG, UNK
  3. SPIRACTIN /00006201/ [Suspect]
     Active Substance: SPIRONOLACTONE
     Dosage: 25 MG, UNK
  4. PAX /00017001/ [Suspect]
     Active Substance: DIAZEPAM
     Dosage: 10 MG, UNK

REACTIONS (2)
  - Lower limb fracture [Unknown]
  - Hip fracture [Unknown]
